FAERS Safety Report 10178033 (Version 1)
Quarter: 2014Q2

REPORT INFORMATION
  Report Type: Spontaneous
  Country: US (occurrence: US)
  Receive Date: 20140517
  Receipt Date: 20140517
  Transmission Date: 20141212
  Serious: Yes (Other)
  Sender: FDA-Public Use
  Company Number: US-ACCORD-023744

PATIENT
  Sex: Female
  Weight: 59.09 kg

DRUGS (1)
  1. ANASTROZOLE ACCORD [Suspect]
     Indication: BREAST CANCER
     Route: 048

REACTIONS (1)
  - Pain in jaw [Not Recovered/Not Resolved]
